FAERS Safety Report 6876177-5 (Version None)
Quarter: 2010Q3

REPORT INFORMATION
  Report Type: 
  Country: None (occurrence: None)
  Receive Date: 20100727
  Receipt Date: 20100719
  Transmission Date: 20110219
  Serious: Yes (Hospitalization)
  Sender: FDA-Public Use
  Company Number: A0857927A

PATIENT
  Age: 54 Year
  Sex: Male

DRUGS (13)
  1. ADVAIR DISKUS 100/50 [Suspect]
     Indication: ASTHMA
     Dosage: 1PUFF TWICE PER DAY
     Route: 055
     Dates: start: 20090501, end: 20100501
  2. UNKNOWN MEDICATION [Concomitant]
  3. VENTOLIN HFA [Concomitant]
     Route: 055
  4. SINGULAIR [Concomitant]
  5. CAPADEX [Concomitant]
  6. GLIPIZIDE [Concomitant]
  7. ALBUTEROL [Concomitant]
  8. NASAL SPRAY [Concomitant]
  9. ASPIRIN [Concomitant]
  10. SIMVASTATIN [Concomitant]
  11. LASIX [Concomitant]
  12. THEOPHYLLINE [Concomitant]
  13. PANTOPRAZOLE [Concomitant]

REACTIONS (7)
  - DRUG INEFFECTIVE [None]
  - DYSPNOEA [None]
  - GLOSSITIS [None]
  - GLOSSODYNIA [None]
  - OVERDOSE [None]
  - PRODUCT QUALITY ISSUE [None]
  - TONGUE HAEMORRHAGE [None]
